FAERS Safety Report 12865673 (Version 1)
Quarter: 2016Q4

REPORT INFORMATION
  Report Type: Spontaneous
  Country: FR (occurrence: FR)
  Receive Date: 20161020
  Receipt Date: 20161020
  Transmission Date: 20170207
  Serious: Yes (Hospitalization, Disabling)
  Sender: FDA-Public Use
  Company Number: FR-PFIZER INC-2016475398

PATIENT
  Age: 65 Year
  Sex: Female

DRUGS (13)
  1. SKENAN [Concomitant]
     Active Substance: MORPHINE SULFATE
     Dosage: 60 MG, DAILY (30 MG 2 PER DAY)
  2. CARBOPLATINE HOSPIRA [Suspect]
     Active Substance: CARBOPLATIN
     Indication: LUNG ADENOCARCINOMA
     Dosage: UNK
     Route: 042
     Dates: start: 20160922, end: 20160922
  3. PARACETAMOL [Concomitant]
     Active Substance: ACETAMINOPHEN
     Indication: PAIN
     Dosage: 1 G, 4X/DAY IF NEEDED
  4. PACLITAXEL KABI [Suspect]
     Active Substance: PACLITAXEL
     Dosage: 90 MG/M2, UNK
     Route: 042
     Dates: start: 20160922, end: 20160922
  5. ACTISKENAN [Concomitant]
     Active Substance: MORPHINE SULFATE
     Indication: PAIN
     Dosage: 15 MG, AS NEEDED
  6. LYRICA [Concomitant]
     Active Substance: PREGABALIN
     Dosage: 250 MG, DAILY (125 MG 2 PER DAY)
  7. PRIMPERAN [Concomitant]
     Active Substance: METOCLOPRAMIDE HYDROCHLORIDE
     Dosage: 2 DF, DAILY
  8. AVASTIN [Suspect]
     Active Substance: BEVACIZUMAB
     Indication: LUNG ADENOCARCINOMA
     Dosage: 10 MG/KG, UNK
     Route: 042
     Dates: start: 20160922, end: 20160922
  9. PREDNISOLONE. [Concomitant]
     Active Substance: PREDNISOLONE
     Dosage: 60 MG, DAILY
     Route: 048
  10. MOVICOL [Concomitant]
     Active Substance: POLYETHYLENE GLYCOL 3350\POTASSIUM CHLORIDE\SODIUM BICARBONATE\SODIUM CHLORIDE
     Dosage: 2 DF, DAILY
  11. GAVISCON /00237601/ [Concomitant]
     Active Substance: ALUMINUM HYDROXIDE\MAGNESIUM CARBONATE
     Dosage: 3 DF, DAILY
  12. HYDROXYZINE [Concomitant]
     Active Substance: HYDROXYZINE\HYDROXYZINE HYDROCHLORIDE
     Dosage: 25 MG, DAILY (AT BEDTIME)
  13. PANTOPRAZOLE [Concomitant]
     Active Substance: PANTOPRAZOLE SODIUM
     Dosage: 20 MG, DAILY

REACTIONS (1)
  - Cerebral ischaemia [Not Recovered/Not Resolved]

NARRATIVE: CASE EVENT DATE: 20160925
